FAERS Safety Report 14101177 (Version 1)
Quarter: 2017Q4

REPORT INFORMATION
  Report Type: Spontaneous
  Country: US (occurrence: None)
  Receive Date: 20171017
  Receipt Date: 20171017
  Transmission Date: 20180321
  Serious: Yes (Hospitalization)
  Sender: FDA-Public Use
  Company Number: None

PATIENT
  Age: 1 Year
  Sex: Male

DRUGS (1)
  1. TRACLEER [Suspect]
     Active Substance: BOSENTAN
     Indication: PULMONARY ARTERIAL HYPERTENSION
     Route: 048
     Dates: start: 20160721

REACTIONS (6)
  - Respiratory failure [None]
  - Pneumonia [None]
  - Rhinorrhoea [None]
  - Cough [None]
  - Tachypnoea [None]
  - Hypoxia [None]

NARRATIVE: CASE EVENT DATE: 20171007
